FAERS Safety Report 7715035-0 (Version None)
Quarter: 2011Q3

REPORT INFORMATION
  Report Type: 
  Country: None (occurrence: None)
  Receive Date: 20110829
  Receipt Date: 20110714
  Transmission Date: 20111222
  Serious: No
  Sender: FDA-Public Use
  Company Number: US-ASTRAZENECA-2011SE42225

PATIENT
  Age: 53 Year
  Sex: Female
  Weight: 52.6 kg

DRUGS (2)
  1. VIMOVO [Suspect]
     Dosage: 500 MG / 20 MG, TWO TIMES A DAY
     Route: 048
     Dates: start: 20110712
  2. VIMOVO [Suspect]
     Indication: OSTEOARTHRITIS
     Dosage: 500 MG / 20 MG, TWO TIMES A DAY
     Route: 048
     Dates: start: 20110708, end: 20110708

REACTIONS (6)
  - PAIN [None]
  - PAIN IN EXTREMITY [None]
  - SOMNOLENCE [None]
  - DRUG DOSE OMISSION [None]
  - FALL [None]
  - MOBILITY DECREASED [None]
